FAERS Safety Report 7563904-7 (Version None)
Quarter: 2011Q2

REPORT INFORMATION
  Report Type: 
  Country: None (occurrence: None)
  Receive Date: 20110622
  Receipt Date: 20110311
  Transmission Date: 20111010
  Serious: No
  Sender: FDA-Public Use
  Company Number: US-BRISTOL-MYERS SQUIBB COMPANY-15562416

PATIENT
  Sex: Female

DRUGS (1)
  1. ETOPOPHOS PRESERVATIVE FREE [Suspect]

REACTIONS (1)
  - ADVERSE EVENT [None]
